FAERS Safety Report 26084195 (Version 1)
Quarter: 2025Q4

REPORT INFORMATION
  Report Type: Spontaneous
  Country: US (occurrence: US)
  Receive Date: 20251124
  Receipt Date: 20251124
  Transmission Date: 20260118
  Serious: Yes (Hospitalization, Other)
  Sender: NOVO NORDISK
  Company Number: US-NOVOPROD-1567958

PATIENT
  Age: 80 Year
  Sex: Male

DRUGS (1)
  1. OZEMPIC [Suspect]
     Active Substance: SEMAGLUTIDE
     Indication: Product used for unknown indication
     Dosage: UNK

REACTIONS (6)
  - Dizziness [Unknown]
  - Lacrimation increased [Unknown]
  - Eyelid ptosis [Unknown]
  - Cerebrovascular accident [Unknown]
  - Benign neoplasm of thyroid gland [Unknown]
  - Eye disorder [Unknown]
